FAERS Safety Report 11471654 (Version 2)
Quarter: 2016Q1

REPORT INFORMATION
  Report Type: Spontaneous
  Country: US (occurrence: US)
  Receive Date: 20150908
  Receipt Date: 20160119
  Transmission Date: 20160525
  Serious: No
  Sender: FDA-Public Use
  Company Number: US-009507513-1509USA002745

PATIENT
  Age: 26 Year
  Sex: Female
  Weight: 76.64 kg

DRUGS (2)
  1. NUVARING [Suspect]
     Active Substance: ETHINYL ESTRADIOL\ETONOGESTREL
     Dosage: 3 WKS IN/1 WK OUT (VAG RING USED FOR 3 WKS; THEN REPLACED)
     Route: 067
  2. NUVARING [Suspect]
     Active Substance: ETHINYL ESTRADIOL\ETONOGESTREL
     Indication: CONTRACEPTION
     Dosage: 1 DF, 3 WEEKS IN 1 WEEK OUT
     Route: 067
     Dates: start: 2005, end: 2015

REACTIONS (6)
  - Breast operation [Unknown]
  - Abdominal pain [Recovered/Resolved]
  - Menstruation irregular [Unknown]
  - Vaginal haemorrhage [Recovered/Resolved]
  - Muscle spasms [Recovered/Resolved]
  - Pelvic pain [Recovered/Resolved]

NARRATIVE: CASE EVENT DATE: 201506
